FAERS Safety Report 21230201 (Version 1)
Quarter: 2022Q3

REPORT INFORMATION
  Report Type: Spontaneous
  Country: TR (occurrence: TR)
  Receive Date: 20220818
  Receipt Date: 20220818
  Transmission Date: 20221027
  Serious: Yes (Death, Other)
  Sender: FDA-Public Use
  Company Number: TR-PURDUE PHARMA-USA-2022-0295931

PATIENT
  Age: 35 Year
  Sex: Female

DRUGS (1)
  1. LIDOCAINE [Suspect]
     Active Substance: LIDOCAINE
     Indication: Ventricular tachyarrhythmia
     Dosage: 1.5 MILLIGRAM/KILOGRAM
     Route: 042

REACTIONS (3)
  - Death [Fatal]
  - Cardiac arrest [Unknown]
  - Drug ineffective [Unknown]
